FAERS Safety Report 6934455-5 (Version None)
Quarter: 2010Q3

REPORT INFORMATION
  Report Type: 
  Country: None (occurrence: None)
  Receive Date: 20100820
  Receipt Date: 20100809
  Transmission Date: 20110219
  Serious: Yes (Hospitalization)
  Sender: FDA-Public Use
  Company Number: US-ELI_LILLY_AND_COMPANY-US201008002440

PATIENT
  Sex: Female

DRUGS (3)
  1. HUMALOG MIX 75/25 [Suspect]
     Indication: TYPE 2 DIABETES MELLITUS
     Dosage: 45 U, EACH MORNING
     Dates: start: 20060101
  2. HUMALOG MIX 75/25 [Suspect]
     Dosage: 45 U, EACH EVENING
     Dates: start: 20060101
  3. GLYBURIDE [Concomitant]

REACTIONS (2)
  - ASTHENIA [None]
  - DIVERTICULITIS [None]
